FAERS Safety Report 5118900-6 (Version None)
Quarter: 2006Q3

REPORT INFORMATION
  Report Type: 
  Country: None (occurrence: None)
  Receive Date: 20060927
  Receipt Date: 20060914
  Transmission Date: 20061208
  Serious: Yes (Hospitalization)
  Sender: FDA-Public Use
  Company Number: 02100-EUR-06-0043

PATIENT
  Sex: Male

DRUGS (1)
  1. CILOSTAZOL [Suspect]
     Indication: INTERMITTENT CLAUDICATION
     Dosage: 200 MG
     Route: 048
     Dates: start: 20050101

REACTIONS (1)
  - TRANSIENT ISCHAEMIC ATTACK [None]
